FAERS Safety Report 23046371 (Version 2)
Quarter: 2023Q4

REPORT INFORMATION
  Report Type: Spontaneous
  Country: CA (occurrence: CA)
  Receive Date: 20231009
  Receipt Date: 20231013
  Transmission Date: 20240110
  Serious: Yes (Death, Other)
  Sender: FDA-Public Use
  Company Number: CA-AMGEN-CANSP2023176773

PATIENT
  Age: 81 Year
  Sex: Female

DRUGS (1)
  1. ENBREL [Suspect]
     Active Substance: ETANERCEPT
     Indication: Product used for unknown indication
     Dosage: 50 MILLIGRAM
     Route: 065

REACTIONS (4)
  - Death [Fatal]
  - Drug dose omission by device [Unknown]
  - Device difficult to use [Unknown]
  - Product packaging issue [Unknown]

NARRATIVE: CASE EVENT DATE: 20230101
